FAERS Safety Report 11729824 (Version 5)
Quarter: 2016Q1

REPORT INFORMATION
  Report Type: Report from Study
  Country: CA (occurrence: CA)
  Receive Date: 20151112
  Receipt Date: 20160126
  Transmission Date: 20160525
  Serious: Yes (Hospitalization, Other)
  Sender: FDA-Public Use
  Company Number: CA-TAKEDA-2015TUS011691

PATIENT
  Age: 26 Year
  Sex: Male
  Weight: 60 kg

DRUGS (4)
  1. VEDOLIZUMAB [Suspect]
     Active Substance: VEDOLIZUMAB
     Indication: CROHN^S DISEASE
     Dosage: 300 MG, UNK
     Route: 042
     Dates: start: 20150811, end: 20151104
  2. CALCIUM [Concomitant]
     Active Substance: CALCIUM
     Dosage: UNK
  3. VITAMIN D [Concomitant]
     Active Substance: CHOLECALCIFEROL
     Dosage: UNK
  4. THALIDOMIDE [Concomitant]
     Active Substance: THALIDOMIDE
     Dosage: 100 MG, BID
     Dates: start: 2013

REACTIONS (8)
  - Peritonitis [Unknown]
  - Haemoglobin decreased [Recovering/Resolving]
  - Blood albumin decreased [Unknown]
  - Anal abscess [Recovering/Resolving]
  - Abscess intestinal [Recovering/Resolving]
  - Blood magnesium decreased [Unknown]
  - Blood potassium decreased [Unknown]
  - Off label use [Unknown]

NARRATIVE: CASE EVENT DATE: 20150811
